FAERS Safety Report 17133558 (Version 1)
Quarter: 2019Q4

REPORT INFORMATION
  Report Type: Spontaneous
  Country: US (occurrence: US)
  Receive Date: 20191118
  Receipt Date: 20191118
  Transmission Date: 20200122
  Serious: No
  Sender: FDA-Public Use
  Company Number: None

PATIENT
  Age: 65 Year
  Sex: Female

DRUGS (1)
  1. MAVYRET [Suspect]
     Active Substance: GLECAPREVIR\PIBRENTASVIR
     Indication: HEPATITIS C
     Dosage: 100-G0MG DAILY ORAL
     Route: 048
     Dates: start: 20191024

REACTIONS (2)
  - Nausea [None]
  - Frequent bowel movements [None]

NARRATIVE: CASE EVENT DATE: 20191024
